FAERS Safety Report 24715530 (Version 1)
Quarter: 2024Q4

REPORT INFORMATION
  Report Type: Spontaneous
  Country: FR (occurrence: FR)
  Receive Date: 20241210
  Receipt Date: 20241210
  Transmission Date: 20250114
  Serious: Yes (Death, Other)
  Sender: SANDOZ
  Company Number: None

PATIENT
  Age: 57 Year
  Sex: Male

DRUGS (5)
  1. THYMOCYTE IMMUNE GLOBULIN NOS [Suspect]
     Active Substance: THYMOCYTE IMMUNE GLOBULIN NOS
     Indication: Immunosuppressant drug therapy
     Dosage: UNK, POST TRANSPLANT REJECTION
     Route: 065
  2. MYCOPHENOLATE MOFETIL [Suspect]
     Active Substance: MYCOPHENOLATE MOFETIL
     Indication: Immunosuppressant drug therapy
     Dosage: 1 G/DAY, POST TRANSPLANT REJECTION
     Route: 065
  3. PREDNISONE [Suspect]
     Active Substance: PREDNISONE
     Indication: Product used for unknown indication
     Dosage: 10 MG/DAY, POST TRANSPLANT REJECTION
     Route: 065
  4. TACROLIMUS [Suspect]
     Active Substance: TACROLIMUS
     Indication: Product used for unknown indication
     Dosage: 4.5 MG/DAY, POST TRANSPLANT REJECTION
     Route: 065
  5. RITUXIMAB [Concomitant]
     Active Substance: RITUXIMAB
     Indication: Product used for unknown indication
     Dosage: UNK
     Route: 065

REACTIONS (3)
  - Hypovolaemic shock [Fatal]
  - Visceral leishmaniasis [Recovered/Resolved]
  - Disease recurrence [Recovered/Resolved]
